FAERS Safety Report 9405033 (Version 1)
Quarter: 2013Q3

REPORT INFORMATION
  Report Type: Spontaneous
  Country: US (occurrence: US)
  Receive Date: 20130717
  Receipt Date: 20130717
  Transmission Date: 20140515
  Serious: Yes (Hospitalization)
  Sender: FDA-Public Use
  Company Number: US-BRISTOL-MYERS SQUIBB COMPANY-18827501

PATIENT
  Age: 80 Year
  Sex: Female

DRUGS (8)
  1. YERVOY [Suspect]
     Indication: METASTATIC MALIGNANT MELANOMA
     Route: 042
     Dates: start: 20130318
  2. ALEVE [Concomitant]
  3. ATENOLOL [Concomitant]
  4. CENTRUM SILVER [Concomitant]
  5. COUMADIN [Concomitant]
  6. LISINOPRIL [Concomitant]
  7. PRILOSEC [Concomitant]
  8. SYSTANE [Concomitant]

REACTIONS (1)
  - Enterocolitis haemorrhagic [Not Recovered/Not Resolved]
